FAERS Safety Report 7281211-7 (Version None)
Quarter: 2010Q4

REPORT INFORMATION
  Report Type: 
  Country: None (occurrence: None)
  Receive Date: 20101221
  Receipt Date: 20091124
  Transmission Date: 20110411
  Serious: Yes (Hospitalization)
  Sender: FDA-Public Use
  Company Number: WAES 0911USA04609

PATIENT
  Age: 57 Year
  Sex: Female

DRUGS (4)
  1. JANUVIA [Suspect]
     Indication: TYPE 2 DIABETES MELLITUS
     Dosage: PO
     Route: 048
     Dates: start: 20091012, end: 20091109
  2. HYZAAR [Concomitant]
  3. VYTORIN [Concomitant]
  4. METFORMIN HCL [Concomitant]

REACTIONS (1)
  - PANCREATITIS [None]
